FAERS Safety Report 25760894 (Version 1)
Quarter: 2025Q3

REPORT INFORMATION
  Report Type: Report from Study
  Country: IN (occurrence: IN)
  Receive Date: 20250904
  Receipt Date: 20250904
  Transmission Date: 20251021
  Serious: Yes (Death, Hospitalization, Other)
  Sender: DAIICHI
  Company Number: IN-AstraZeneca-CH-00941575A

PATIENT
  Age: 45 Year
  Sex: Female

DRUGS (1)
  1. TRASTUZUMAB DERUXTECAN [Suspect]
     Active Substance: TRASTUZUMAB DERUXTECAN
     Indication: HER2 positive breast cancer
     Dosage: 200 MILLIGRAM
     Route: 042

REACTIONS (1)
  - Hepatic failure [Fatal]

NARRATIVE: CASE EVENT DATE: 20250626
